FAERS Safety Report 7187094-8 (Version None)
Quarter: 2010Q4

REPORT INFORMATION
  Report Type: 
  Country: None (occurrence: None)
  Receive Date: 20101222
  Receipt Date: 20101213
  Transmission Date: 20110411
  Serious: Yes (Other)
  Sender: FDA-Public Use
  Company Number: US-ABBOTT-10P-163-0691476-00

PATIENT
  Sex: Female
  Weight: 99.88 kg

DRUGS (1)
  1. HUMIRA [Suspect]
     Indication: ANKYLOSING SPONDYLITIS
     Dates: start: 20071101, end: 20090611

REACTIONS (10)
  - ABASIA [None]
  - ASTHENIA [None]
  - CHEST PAIN [None]
  - DIZZINESS [None]
  - DYSPNOEA [None]
  - IMMUNOSUPPRESSION [None]
  - PHARYNGEAL HAEMORRHAGE [None]
  - PNEUMONIA [None]
  - RENAL CANCER [None]
  - WHITE BLOOD CELL COUNT DECREASED [None]
